FAERS Safety Report 18938280 (Version 2)
Quarter: 2022Q3

REPORT INFORMATION
  Report Type: Spontaneous
  Country: FR (occurrence: FR)
  Receive Date: 20210225
  Receipt Date: 20220713
  Transmission Date: 20221027
  Serious: Yes (Other)
  Sender: FDA-Public Use
  Company Number: FR-GSKCCFEMEA-CASE-01147787_AE-40755

PATIENT

DRUGS (1)
  1. ZEJULA [Suspect]
     Active Substance: NIRAPARIB
     Indication: Ovarian cancer
     Dosage: 100 MG

REACTIONS (9)
  - Leukaemia [Unknown]
  - Rectal haemorrhage [Unknown]
  - Thrombocytopenia [Unknown]
  - Erythropoiesis abnormal [Unknown]
  - Granulocytes abnormal [Unknown]
  - Blast cell count increased [Unknown]
  - Myeloblast count increased [Unknown]
  - Bone marrow disorder [Unknown]
  - Megakaryocytes abnormal [Unknown]

NARRATIVE: CASE EVENT DATE: 20200201
